FAERS Safety Report 7550500-0 (Version None)
Quarter: 2011Q2

REPORT INFORMATION
  Report Type: 
  Country: None (occurrence: None)
  Receive Date: 20110615
  Receipt Date: 20110602
  Transmission Date: 20111010
  Serious: Yes (Other)
  Sender: FDA-Public Use
  Company Number: CA-ELI_LILLY_AND_COMPANY-CA201105001438

PATIENT
  Sex: Male

DRUGS (14)
  1. CYMBALTA [Suspect]
     Dosage: 90 MG, QD
  2. FENTANYL [Concomitant]
     Dosage: 50 DF, UNKNOWN
  3. AZITHROMYCIN [Concomitant]
  4. CYMBALTA [Suspect]
     Dosage: 60 MG, QD
     Dates: start: 20091101
  5. SYNTHROID [Concomitant]
  6. CYMBALTA [Suspect]
     Dosage: 60 MG, QD
     Dates: end: 20110401
  7. DILAUDID [Concomitant]
     Indication: PAIN
     Dosage: 3 MG, PRN
  8. ISENTRESS [Concomitant]
  9. LAMIVUDINE (EPIVIR HBV) [Concomitant]
  10. RABEPRAZOLE SODIUM [Concomitant]
  11. CYMBALTA [Suspect]
     Indication: NEURALGIA
     Dosage: 30 MG, QD
     Dates: start: 20091001, end: 20091101
  12. KALETRA [Concomitant]
  13. FENTANYL [Concomitant]
     Indication: NEURALGIA
     Dosage: 75 DF, 3/W
  14. FENTANYL [Concomitant]
     Dosage: 12.5 DF, QOD

REACTIONS (12)
  - SOMNAMBULISM [None]
  - IRREGULAR SLEEP PHASE [None]
  - DEPRESSION [None]
  - OFF LABEL USE [None]
  - SOMNOLENCE [None]
  - NARCOLEPSY [None]
  - ABNORMAL BEHAVIOUR [None]
  - LAZINESS [None]
  - ABNORMAL DREAMS [None]
  - HALLUCINATION, VISUAL [None]
  - ROAD TRAFFIC ACCIDENT [None]
  - INTENTIONAL DRUG MISUSE [None]
